FAERS Safety Report 21047025 (Version 1)
Quarter: 2022Q3

REPORT INFORMATION
  Report Type: Spontaneous
  Country: US (occurrence: None)
  Receive Date: 20220705
  Receipt Date: 20220705
  Transmission Date: 20221027
  Serious: No
  Sender: FDA-Public Use
  Company Number: None

PATIENT
  Sex: Female

DRUGS (1)
  1. TREMFYA [Suspect]
     Active Substance: GUSELKUMAB
     Indication: Psoriasis
     Dosage: OTHER FREQUENCY : WEEK 0,4, 8 WEEKS;?
     Route: 030
     Dates: start: 202205

REACTIONS (4)
  - Drug ineffective [None]
  - Pruritus [None]
  - Burning sensation [None]
  - Pain [None]
